FAERS Safety Report 15645349 (Version 1)
Quarter: 2018Q4

REPORT INFORMATION
  Report Type: Spontaneous
  Country: IL (occurrence: IL)
  Receive Date: 20181121
  Receipt Date: 20181121
  Transmission Date: 20190205
  Serious: Yes (Other)
  Sender: FDA-Public Use
  Company Number: IL-009507513-1811ISR005488

PATIENT
  Age: 57 Year
  Sex: Male

DRUGS (2)
  1. AMARYL [Suspect]
     Active Substance: GLIMEPIRIDE
     Dosage: UNK
     Dates: start: 2015
  2. JANUET [Suspect]
     Active Substance: METFORMIN HYDROCHLORIDE\SITAGLIPTIN PHOSPHATE
     Dosage: UNK
     Route: 048
     Dates: start: 2015

REACTIONS (4)
  - Hypoglycaemia [Unknown]
  - Intentional product misuse [Unknown]
  - Diabetes mellitus inadequate control [Unknown]
  - Latent autoimmune diabetes in adults [Unknown]
